FAERS Safety Report 17890003 (Version 1)
Quarter: 2020Q2

REPORT INFORMATION
  Report Type: Spontaneous
  Country: NL (occurrence: DE)
  Receive Date: 20200612
  Receipt Date: 20200612
  Transmission Date: 20200714
  Serious: Yes (Hospitalization, Other)
  Sender: FDA-Public Use
  Company Number: DE-FRESENIUS KABI-FK202005730

PATIENT
  Age: 1 Day
  Sex: Male
  Weight: 3.77 kg

DRUGS (3)
  1. PROPOFOL (MANUFACTURER UNKNOWN) [Suspect]
     Active Substance: PROPOFOL
     Indication: SURGERY
     Dosage: GESTATION PERIOD AT A TIME OF EXPOSURE: 3 TRIMESTER; ADDITIONAL INFORMATION ON DRUG: 40.3. - 40.3. G
     Route: 064
     Dates: start: 20191218, end: 20191218
  2. ROCURONIUM [Concomitant]
     Active Substance: ROCURONIUM BROMIDE
     Indication: SURGERY
     Dosage: GESTATION PERIOD AT A TIME OF EXPOSURE: 3 TRIMESTER; ADDITIONAL INFORMATION ON DRUG: 40.3. - 40.3. G
     Route: 064
     Dates: start: 20191218, end: 20191218
  3. KETAMINE HYDROCHLORIDE. [Suspect]
     Active Substance: KETAMINE HYDROCHLORIDE
     Indication: SURGERY
     Dosage: GESTATION PERIOD AT A TIME OF EXPOSURE: 3 TRIMESTER; ADDITIONAL INFORMATION ON DRUG: 40.3. - 40.3. G
     Route: 064
     Dates: start: 20191218, end: 20191218

REACTIONS (3)
  - Intraventricular haemorrhage neonatal [Recovered/Resolved]
  - Respiratory disorder neonatal [Recovered/Resolved]
  - Infantile apnoea [Recovered/Resolved]

NARRATIVE: CASE EVENT DATE: 20191218
